FAERS Safety Report 14113675 (Version 1)
Quarter: 2017Q4

REPORT INFORMATION
  Report Type: Spontaneous
  Country: CA (occurrence: CA)
  Receive Date: 20171023
  Receipt Date: 20171023
  Transmission Date: 20180321
  Serious: Yes (Disabling)
  Sender: FDA-Public Use
  Company Number: CA-CONCORDIA PHARMACEUTICALS INC.-GSH201710-005927

PATIENT
  Sex: Female

DRUGS (2)
  1. ARAVA [Suspect]
     Active Substance: LEFLUNOMIDE
     Indication: RHEUMATOID ARTHRITIS
     Route: 048
     Dates: start: 200009, end: 201709
  2. HYDROXYCHLOROQUINE [Suspect]
     Active Substance: HYDROXYCHLOROQUINE
     Indication: PRODUCT USED FOR UNKNOWN INDICATION
     Route: 048
     Dates: start: 199510, end: 199602

REACTIONS (6)
  - Pain in extremity [Not Recovered/Not Resolved]
  - Dysstasia [Not Recovered/Not Resolved]
  - Drug ineffective [Unknown]
  - Arthralgia [Not Recovered/Not Resolved]
  - Fine motor skill dysfunction [Not Recovered/Not Resolved]
  - Rheumatoid nodule [Not Recovered/Not Resolved]
